FAERS Safety Report 19364231 (Version 1)
Quarter: 2021Q2

REPORT INFORMATION
  Report Type: Spontaneous
  Country: GB (occurrence: GB)
  Receive Date: 20210602
  Receipt Date: 20210602
  Transmission Date: 20210717
  Serious: Yes (Other)
  Sender: FDA-Public Use
  Company Number: GB-PFIZER INC-2021575320

PATIENT
  Age: 74 Year
  Sex: Female
  Weight: 84.45 kg

DRUGS (47)
  1. DIHYDROCODEINE [Concomitant]
     Active Substance: DIHYDROCODEINE
     Indication: PAIN
  2. SIMVASTATIN. [Concomitant]
     Active Substance: SIMVASTATIN
     Dosage: UNK UNK, DAILY
  3. SODIUM CHLORIDE. [Concomitant]
     Active Substance: SODIUM CHLORIDE
     Dates: start: 20201124, end: 20201124
  4. VANCOMYCIN [Concomitant]
     Active Substance: VANCOMYCIN
     Dosage: UNK, EVERY 4 DAY
     Dates: end: 20210120
  5. DEXAMETHASONE SODIUM PHOSPHATE. [Suspect]
     Active Substance: DEXAMETHASONE SODIUM PHOSPHATE
     Dosage: UNK, DAILY
  6. ACICLOVIR [Concomitant]
     Active Substance: ACYCLOVIR
     Dates: end: 20210126
  7. ADCAL D [Concomitant]
     Active Substance: CALCIUM\CHOLECALCIFEROL
     Dosage: UNK, EVERY 0.5 DAY
     Dates: start: 20201124
  8. FILGRASTIM [Concomitant]
     Active Substance: FILGRASTIM
     Dosage: UNK, DAILY
     Dates: start: 20201128, end: 20201205
  9. MEROPENEM. [Concomitant]
     Active Substance: MEROPENEM
     Dosage: UNK, EVERY 0.33 DAY
     Dates: end: 20210103
  10. TRIMOVATE [CHLORTETRACYCLINE HYDROCHLORIDE;CLOBETASONE BUTYRATE;NYSTAT [Concomitant]
     Active Substance: CHLORTETRACYCLINE\CLOBETASONE\NYSTATIN
     Dosage: UNK, EVERY 0.5 DAY
     Dates: end: 20210109
  11. ETOPOSIDE. [Suspect]
     Active Substance: ETOPOSIDE
     Indication: SMALL CELL LUNG CANCER EXTENSIVE STAGE
     Dosage: 200 MG
     Dates: start: 20201124
  12. PREDNISOLONE. [Suspect]
     Active Substance: PREDNISOLONE
     Dosage: UNK, DAILY
     Dates: end: 20210121
  13. CHLORPHENAMINE [Concomitant]
     Active Substance: CHLORPHENIRAMINE MALEATE
     Dosage: UNK, DAILY
     Dates: start: 20201124, end: 20201124
  14. CO?AMOXICLAV PHARMANIAGA [Concomitant]
     Dosage: UNK, EVERY 0.33 DAY
     Dates: end: 20210107
  15. HYDROCORTISONE. [Concomitant]
     Active Substance: HYDROCORTISONE
     Dosage: 100 MG, DAILY
     Dates: start: 20201124, end: 20201124
  16. ONDANSETRON [Concomitant]
     Active Substance: ONDANSETRON
     Dosage: UNK, EVERY 0.33 DAY
  17. POTASSIUM CHLORIDE. [Concomitant]
     Active Substance: POTASSIUM CHLORIDE
     Dosage: UNK, EVERY 0.33 DAY
     Dates: end: 20210104
  18. DEXAMETHASONE SODIUM PHOSPHATE. [Suspect]
     Active Substance: DEXAMETHASONE SODIUM PHOSPHATE
     Dosage: 8 MG
  19. AMITRIPTYLINE [Concomitant]
     Active Substance: AMITRIPTYLINE
  20. AQUEOUS [EMULSIFYING WAX;PARAFFIN, LIQUID;WHITE SOFT PARAFFIN] [Concomitant]
     Dosage: UNK, EVERY 0.5 DAY
  21. DOMPERIDONE [Concomitant]
     Active Substance: DOMPERIDONE
     Dates: start: 20201103
  22. LOPERAMIDE [Concomitant]
     Active Substance: LOPERAMIDE
     Dates: start: 20201103
  23. ONDANSETRON [Concomitant]
     Active Substance: ONDANSETRON
     Dosage: UNK, DAILY
     Dates: start: 20201124, end: 20201124
  24. PHYTOMENADIONE [Concomitant]
     Active Substance: PHYTONADIONE
     Dosage: UNK, EVERY 0.5 DAY
     Dates: end: 20201226
  25. DEXAMETHASONE SODIUM PHOSPHATE. [Suspect]
     Active Substance: DEXAMETHASONE SODIUM PHOSPHATE
     Dosage: UNK, DAILY
  26. FILGRASTIM [Concomitant]
     Active Substance: FILGRASTIM
     Dosage: UNK, DAILY
     Dates: end: 20201226
  27. ONDANSETRON [Concomitant]
     Active Substance: ONDANSETRON
     Dosage: UNK UNK, DAILY
     Dates: end: 20201215
  28. PHOSPHATE SANDOZ [Concomitant]
     Active Substance: SODIUM PHOSPHATE, MONOBASIC, ANHYDROUS
     Dosage: UNK, EVERY 0.33 DAYS
     Dates: end: 20210108
  29. CALCIUM CARBONATE. [Concomitant]
     Active Substance: CALCIUM CARBONATE
     Dosage: UNK, DAILY
     Dates: end: 20210108
  30. CHLORPHENAMINE [Concomitant]
     Active Substance: CHLORPHENIRAMINE MALEATE
     Dosage: 10 MG
     Dates: end: 20201215
  31. CYCLIZINE [Concomitant]
     Active Substance: CYCLIZINE
     Dosage: UNK, EVERY 0.33 DAY
  32. DENOSUMAB [Concomitant]
     Active Substance: DENOSUMAB
     Dosage: UNK, MONTHLY
     Dates: start: 20201124
  33. MAGNESIUM SULFATE. [Concomitant]
     Active Substance: MAGNESIUM SULFATE
     Dosage: UNK UNK, DAILY
     Dates: end: 20201226
  34. PHOSPHATES [SODIUM PHOSPHATE] [Concomitant]
     Active Substance: SODIUM PHOSPHATE
     Dosage: UNK, DAILY
     Dates: end: 20201226
  35. DEXAMETHASONE SODIUM PHOSPHATE. [Suspect]
     Active Substance: DEXAMETHASONE SODIUM PHOSPHATE
     Dosage: UNK, DAILY
     Dates: start: 20201124, end: 20201124
  36. DEXAMETHASONE SODIUM PHOSPHATE. [Suspect]
     Active Substance: DEXAMETHASONE SODIUM PHOSPHATE
     Dosage: UNK, DAILY
     Dates: start: 20201125, end: 20201127
  37. CARBOPLATIN. [Suspect]
     Active Substance: CARBOPLATIN
     Indication: SMALL CELL LUNG CANCER EXTENSIVE STAGE
     Dosage: 450 MG
     Dates: start: 20201124
  38. ATEZOLIZUMAB. [Suspect]
     Active Substance: ATEZOLIZUMAB
     Indication: SMALL CELL LUNG CANCER EXTENSIVE STAGE
     Dosage: 1200 MG, Q3WEEKS
     Dates: start: 20201103
  39. METHYLPREDNISOLONE. [Concomitant]
     Active Substance: METHYLPREDNISOLONE
     Dosage: UNK, DAILY
     Dates: end: 20210120
  40. PARACETAMOL [Concomitant]
     Active Substance: ACETAMINOPHEN
     Indication: PAIN
  41. ATEZOLIZUMAB. [Suspect]
     Active Substance: ATEZOLIZUMAB
     Dosage: 1200 MG, Q3WEEKS
     Route: 042
     Dates: start: 20201124
  42. ATEZOLIZUMAB. [Suspect]
     Active Substance: ATEZOLIZUMAB
     Dosage: 1200 MG, Q3WEEKS
     Dates: start: 20201215
  43. CALCIUM GLUCONATE. [Concomitant]
     Active Substance: CALCIUM GLUCONATE
     Dosage: UNK, DAILY
     Dates: end: 20201226
  44. CLOBETASOL [Concomitant]
     Active Substance: CLOBETASOL
     Dosage: UNK, DAILY
     Dates: end: 20210108
  45. DALTEPARIN [Concomitant]
     Active Substance: DALTEPARIN
     Dosage: UNK, DAILY
     Dates: end: 20210125
  46. NYSTATIN. [Concomitant]
     Active Substance: NYSTATIN
     Dosage: UNK, EVERY 4 DAY
     Dates: end: 20210107
  47. OXYGEN. [Concomitant]
     Active Substance: OXYGEN
     Dosage: UNK, DAILY
     Dates: start: 20201124, end: 20201124

REACTIONS (1)
  - Pancreatitis chronic [Not Recovered/Not Resolved]

NARRATIVE: CASE EVENT DATE: 202012
